FAERS Safety Report 6981726-2 (Version None)
Quarter: 2010Q3

REPORT INFORMATION
  Report Type: 
  Country: None (occurrence: None)
  Receive Date: 20100914
  Receipt Date: 20091021
  Transmission Date: 20110219
  Serious: No
  Sender: FDA-Public Use
  Company Number: US-PFIZER INC-2009261634

PATIENT
  Sex: Male
  Weight: 132 kg

DRUGS (2)
  1. LYRICA [Suspect]
     Indication: FIBROMYALGIA
     Dosage: 50 MG, 2X/DAY
     Dates: start: 20090819
  2. INSULIN [Concomitant]
     Dosage: UNK

REACTIONS (1)
  - MUSCLE SPASMS [None]
